FAERS Safety Report 19411899 (Version 1)
Quarter: 2021Q2

REPORT INFORMATION
  Report Type: Spontaneous
  Country: US (occurrence: US)
  Receive Date: 20210614
  Receipt Date: 20210614
  Transmission Date: 20210717
  Serious: Yes (Hospitalization)
  Sender: FDA-Public Use
  Company Number: None

PATIENT
  Age: 50 Year
  Sex: Female

DRUGS (2)
  1. MAVYRET [Suspect]
     Active Substance: GLECAPREVIR\PIBRENTASVIR
     Indication: HEPATITIS C
     Dosage: 100?40MG 3 TABLETS DAILY ORAL
     Route: 048
     Dates: start: 20210423
  2. MAVYRET [Suspect]
     Active Substance: GLECAPREVIR\PIBRENTASVIR
     Indication: HEPATITIS VIRAL
     Dosage: 100?40MG 3 TABLETS DAILY ORAL
     Route: 048
     Dates: start: 20210423

REACTIONS (3)
  - Dyspnoea [None]
  - Fluid overload [None]
  - Myocardial infarction [None]

NARRATIVE: CASE EVENT DATE: 20210527
